FAERS Safety Report 18491274 (Version 1)
Quarter: 2020Q4

REPORT INFORMATION
  Report Type: Spontaneous
  Country: DE (occurrence: DE)
  Receive Date: 20201111
  Receipt Date: 20201111
  Transmission Date: 20210114
  Serious: Yes (Hospitalization)
  Sender: FDA-Public Use
  Company Number: DE-TEVA-2020-DE-1846762

PATIENT
  Age: 64 Year
  Sex: Female

DRUGS (14)
  1. FLUTICASON/SALMETEROL [Concomitant]
     Dosage: 500 | 50 UG, 1-0-1-0,
     Route: 055
  2. INSULIN HUMAN [Concomitant]
     Active Substance: INSULIN HUMAN
     Dosage: 300 IU, BY VALUE, AMPOULES
     Route: 058
  3. RAMIPRIL. [Concomitant]
     Active Substance: RAMIPRIL
     Dosage: 2.5 MILLIGRAM DAILY; 1-0-0-0,
     Route: 048
  4. FOLSAURE [Concomitant]
     Active Substance: FOLIC ACID
     Dosage: 5 MG / WEEK, 1X,
     Route: 048
  5. ATORVASTATIN [Concomitant]
     Active Substance: ATORVASTATIN
     Dosage: 60 MILLIGRAM DAILY;  0-0-1-0,
     Route: 048
  6. SITAGLIPTIN [Concomitant]
     Active Substance: SITAGLIPTIN
     Dosage: 50 MILLIGRAM DAILY; , 1-0-0-0,
     Route: 048
  7. ALLOPURINOL. [Concomitant]
     Active Substance: ALLOPURINOL
     Dosage: .5 DOSAGE FORMS DAILY; 300 MG, 0.5-0-0-0
     Route: 048
  8. METOCLOPRAMID [Concomitant]
     Active Substance: METOCLOPRAMIDE
     Dosage: 1 MG/ML, 3X,
     Route: 048
  9. METHOTREXATE. [Concomitant]
     Active Substance: METHOTREXATE
     Dosage: 10 MG / WEEK, 1X,
     Route: 048
  10. INSULIN GLARGIN [Concomitant]
     Active Substance: INSULIN GLARGINE
     Dosage: 10 IU (INTERNATIONAL UNIT) DAILY; 0-1-0-0
     Route: 058
  11. TIOTROPIUMBROMID [Concomitant]
     Dosage: 18 MICROGRAM DAILY; 1-0-0-0
     Route: 055
  12. PANTOPRAZOL [Suspect]
     Active Substance: PANTOPRAZOLE SODIUM
     Dosage: 80 MILLIGRAM DAILY;  1-0-1-0,
     Route: 048
  13. ACETYLSALICYLSAURE [Suspect]
     Active Substance: ASPIRIN
     Dosage: 100 MILLIGRAM DAILY; 0-1-0-0,
     Route: 048
  14. METAMIZOL [Concomitant]
     Active Substance: METAMIZOLE SODIUM
     Dosage: 2000 MILLIGRAM DAILY;  1-1-1-1,
     Route: 048

REACTIONS (5)
  - Abdominal pain [Unknown]
  - Nausea [Unknown]
  - Product prescribing error [Unknown]
  - Vomiting [Unknown]
  - General physical health deterioration [Unknown]
